FAERS Safety Report 19150995 (Version 3)
Quarter: 2021Q2

REPORT INFORMATION
  Report Type: Spontaneous
  Country: NL (occurrence: NL)
  Receive Date: 20210419
  Receipt Date: 20210518
  Transmission Date: 20210717
  Serious: Yes (Hospitalization, Other)
  Sender: FDA-Public Use
  Company Number: NL-LUPIN PHARMACEUTICALS INC.-2021-04749

PATIENT
  Sex: Female
  Weight: 3.2 kg

DRUGS (2)
  1. SILDENAFIL. [Suspect]
     Active Substance: SILDENAFIL
     Indication: PULMONARY HYPERTENSION
     Dosage: 35 MILLIGRAM/KILOGRAM, QD (SILDENAFIL SUSPENSION CONTAINS 10 MG/ML OF DRUG. PATIENT ACCIDENTALLY REC
     Route: 048
     Dates: start: 20190702, end: 20200319
  2. SILDENAFIL. [Suspect]
     Active Substance: SILDENAFIL
     Indication: RIGHT VENTRICULAR SYSTOLIC PRESSURE INCREASED

REACTIONS (6)
  - Product administration error [Unknown]
  - Product dispensing error [Unknown]
  - Accidental overdose [Unknown]
  - Diarrhoea [Recovered/Resolved]
  - Drug level increased [Recovered/Resolved]
  - Abdominal distension [Unknown]

NARRATIVE: CASE EVENT DATE: 20190728
